FAERS Safety Report 11674324 (Version 1)
Quarter: 2015Q4

REPORT INFORMATION
  Report Type: Spontaneous
  Country: US (occurrence: US)
  Receive Date: 20151028
  Receipt Date: 20151028
  Transmission Date: 20160304
  Serious: No
  Sender: FDA-Public Use
  Company Number: US-PFIZER INC-2015352401

PATIENT
  Age: 66 Year
  Sex: Female
  Weight: 52 kg

DRUGS (16)
  1. GABAPENTIN. [Suspect]
     Active Substance: GABAPENTIN
     Dosage: 400 MG, UNK
     Route: 048
  2. BOTOX [Concomitant]
     Active Substance: ONABOTULINUMTOXINA
     Indication: TORTICOLLIS
     Dosage: UNK UNK, EVERY 3 MONTHS
  3. BOTOX [Concomitant]
     Active Substance: ONABOTULINUMTOXINA
     Indication: MUSCLE SPASMS
  4. NEURONTIN [Suspect]
     Active Substance: GABAPENTIN
     Indication: PAIN
  5. GABAPENTIN. [Suspect]
     Active Substance: GABAPENTIN
     Dosage: 400 MG, 3X/DAY
     Route: 048
  6. NEURONTIN [Suspect]
     Active Substance: GABAPENTIN
     Indication: BACK DISORDER
     Dosage: 400 MG, 2X/DAY, (TWO AT NIGHT)
     Route: 048
  7. NEURONTIN [Suspect]
     Active Substance: GABAPENTIN
     Indication: INTERVERTEBRAL DISC DEGENERATION
  8. BOTOX [Concomitant]
     Active Substance: ONABOTULINUMTOXINA
     Indication: INTERVERTEBRAL DISC DEGENERATION
  9. VERAPAMIL [Concomitant]
     Active Substance: VERAPAMIL HYDROCHLORIDE
     Indication: ATRIAL TACHYCARDIA
     Dosage: 120 MG, 1X/DAY, (EVERY MORNIN)
  10. PREMPRO [Concomitant]
     Active Substance: ESTROGENS, CONJUGATED\MEDROXYPROGESTERONE ACETATE
     Indication: OESTROGEN THERAPY
     Dosage: 0.45/1.5 MG ONCE A DAY
  11. NEURONTIN [Suspect]
     Active Substance: GABAPENTIN
     Indication: TORTICOLLIS
  12. NEURONTIN [Suspect]
     Active Substance: GABAPENTIN
     Indication: MUSCLE SPASMS
  13. BOTOX [Concomitant]
     Active Substance: ONABOTULINUMTOXINA
     Indication: MUSCULOSKELETAL DISCOMFORT
  14. TRAMADOL. [Concomitant]
     Active Substance: TRAMADOL
     Indication: BACK PAIN
     Dosage: 50 MG, UNK
  15. PREMPRO [Concomitant]
     Active Substance: ESTROGENS, CONJUGATED\MEDROXYPROGESTERONE ACETATE
     Indication: HOT FLUSH
  16. GABAPENTIN. [Suspect]
     Active Substance: GABAPENTIN
     Dosage: 400 MG, UNK
     Route: 048

REACTIONS (6)
  - Activities of daily living impaired [Unknown]
  - Drug ineffective for unapproved indication [Not Recovered/Not Resolved]
  - Somnolence [Unknown]
  - Drug dispensing error [Unknown]
  - Sciatica [Not Recovered/Not Resolved]
  - Headache [Not Recovered/Not Resolved]
